FAERS Safety Report 11777440 (Version 2)
Quarter: 2015Q4

REPORT INFORMATION
  Report Type: Spontaneous
  Country: US (occurrence: US)
  Receive Date: 20151125
  Receipt Date: 20151130
  Transmission Date: 20160304
  Serious: No
  Sender: FDA-Public Use
  Company Number: US-BAYER-2015-476288

PATIENT
  Age: 33 Year
  Sex: Male
  Weight: 90.7 kg

DRUGS (1)
  1. CLARITIN [Suspect]
     Active Substance: LORATADINE
     Dosage: 1 DF, UNK

REACTIONS (3)
  - Anxiety [None]
  - Somnolence [None]
  - Product use issue [Unknown]

NARRATIVE: CASE EVENT DATE: 20151123
